FAERS Safety Report 5619878-9 (Version None)
Quarter: 2008Q1

REPORT INFORMATION
  Report Type: 
  Country: None (occurrence: None)
  Receive Date: 20080208
  Receipt Date: 20070601
  Transmission Date: 20080703
  Serious: No
  Sender: FDA-Public Use
  Company Number: US-ABBOTT-07P-163-0371166-00

PATIENT
  Sex: Female
  Weight: 86.26 kg

DRUGS (1)
  1. VICODIN [Suspect]
     Indication: CHOLECYSTECTOMY
     Route: 048
     Dates: start: 20070518

REACTIONS (2)
  - DRUG INEFFECTIVE [None]
  - NAUSEA [None]
